FAERS Safety Report 7328871-X (Version None)
Quarter: 2011Q1

REPORT INFORMATION
  Report Type: 
  Country: None (occurrence: None)
  Receive Date: 20110303
  Receipt Date: 20110228
  Transmission Date: 20110831
  Serious: Yes (Other)
  Sender: FDA-Public Use
  Company Number: AU-ROCHE-762425

PATIENT
  Sex: Male

DRUGS (1)
  1. AVASTIN [Suspect]
     Route: 065
     Dates: start: 20090901, end: 20101019

REACTIONS (3)
  - LUNG DISORDER [None]
  - LIVER DISORDER [None]
  - ANAL FISTULA [None]
